FAERS Safety Report 8775888 (Version 1)
Quarter: 2012Q4

REPORT INFORMATION
  Report Type: Report from Study
  Country: US (occurrence: US)
  Receive Date: 20120910
  Receipt Date: 20120910
  Transmission Date: 20130627
  Serious: Yes (Hospitalization)
  Sender: FDA-Public Use
  Company Number: US-BRISTOL-MYERS SQUIBB COMPANY-16914699

PATIENT
  Age: 65 Year
  Sex: Female
  Weight: 101 kg

DRUGS (24)
  1. SPRYCEL [Suspect]
     Indication: ACUTE MYELOID LEUKAEMIA
     Dosage: recent: 7Jul12. 100mg on days 6-26, 13-33
     Route: 048
     Dates: start: 20120616
  2. CYTARABINE [Suspect]
     Indication: ACUTE MYELOID LEUKAEMIA
     Dosage: recent: 23Jun12.
     Route: 042
     Dates: start: 20120616
  3. DAUNORUBICIN [Suspect]
     Indication: ACUTE MYELOID LEUKAEMIA
     Dosage: Recent: 18Jun12. 60mg/m2 day 1-3
     Route: 042
     Dates: start: 20120616
  4. ATROVENT [Concomitant]
  5. BENADRYL [Concomitant]
  6. CALCIUM CARBONATE [Concomitant]
  7. FAMOTIDINE [Concomitant]
  8. FLAGYL [Concomitant]
  9. FOLIC ACID [Concomitant]
  10. GOLYTELY [Concomitant]
  11. IMODIUM [Concomitant]
  12. LORAZEPAM [Concomitant]
  13. MAGNESIUM SULFATE [Concomitant]
  14. METOPROLOL TARTRATE [Concomitant]
  15. MICAFUNGIN SODIUM [Concomitant]
  16. NYSTATIN ORAL SUSPENSION [Concomitant]
  17. PREDNISONE [Concomitant]
  18. SINGULAIR [Concomitant]
  19. SOLU-MEDROL [Concomitant]
  20. TRAMADOL [Concomitant]
  21. TRAZODONE HCL [Concomitant]
  22. TYLENOL [Concomitant]
  23. VANCOMYCIN [Concomitant]
  24. ZOFRAN [Concomitant]

REACTIONS (1)
  - Delirium [Recovering/Resolving]
